FAERS Safety Report 6003130-6 (Version None)
Quarter: 2008Q4

REPORT INFORMATION
  Report Type: 
  Country: None (occurrence: None)
  Receive Date: 20081212
  Receipt Date: 20081212
  Transmission Date: 20090506
  Serious: Yes (Hospitalization)
  Sender: FDA-Public Use
  Company Number: None

PATIENT
  Age: 76 Year
  Sex: Male

DRUGS (1)
  1. IOPROMIDE [Suspect]
     Indication: ANGIOGRAM
     Dosage: 100 ML ONCE IV
     Route: 042
     Dates: start: 20080814, end: 20080814

REACTIONS (5)
  - BLOOD PRESSURE INCREASED [None]
  - CHILLS [None]
  - CYANOSIS [None]
  - PYREXIA [None]
  - RESPIRATORY DEPRESSION [None]
